FAERS Safety Report 4575548-X (Version None)
Quarter: 2005Q1

REPORT INFORMATION
  Report Type: 
  Country: None (occurrence: None)
  Receive Date: 20050209
  Receipt Date: 20050124
  Transmission Date: 20050727
  Serious: Yes (Hospitalization, Other)
  Sender: FDA-Public Use
  Company Number: PHEH2005US01269

PATIENT
  Age: 56 Year
  Sex: Female
  Weight: 113 kg

DRUGS (5)
  1. STARLIX [Suspect]
     Indication: DIABETES MELLITUS NON-INSULIN-DEPENDENT
     Dosage: 120 MG, TID
     Route: 048
     Dates: start: 20050104, end: 20050115
  2. LANTUS [Concomitant]
     Indication: DIABETES MELLITUS NON-INSULIN-DEPENDENT
     Dosage: 22 UNITS QD
     Route: 058
     Dates: start: 20030101
  3. ATACAND [Concomitant]
     Indication: HYPERTENSION
     Dosage: 8 MG, QD
     Route: 048
     Dates: start: 20030904
  4. LIPITOR [Concomitant]
     Indication: DYSLIPIDAEMIA
     Dosage: UNK MG, QD
     Route: 048
     Dates: start: 20030301
  5. NEPHROCAPS [Concomitant]
     Dosage: UNK, QD
     Route: 048
     Dates: start: 20030601

REACTIONS (12)
  - ALANINE AMINOTRANSFERASE INCREASED [None]
  - ASPARTATE AMINOTRANSFERASE INCREASED [None]
  - BLOOD ALKALINE PHOSPHATASE INCREASED [None]
  - BLOOD CREATININE INCREASED [None]
  - BLOOD UREA INCREASED [None]
  - HEPATIC ENZYME INCREASED [None]
  - HEPATITIS [None]
  - HEPATITIS B ANTIBODY POSITIVE [None]
  - HYPOTENSION [None]
  - JAUNDICE [None]
  - NAUSEA [None]
  - PRURITUS [None]
